FAERS Safety Report 20512053 (Version 3)
Quarter: 2022Q1

REPORT INFORMATION
  Report Type: Spontaneous
  Country: JP (occurrence: JP)
  Receive Date: 20220224
  Receipt Date: 20220324
  Transmission Date: 20220423
  Serious: Yes (Death, Other)
  Sender: FDA-Public Use
  Company Number: JP-GLAXOSMITHKLINE-JP2022JPN031592

PATIENT
  Age: 83 Year
  Sex: Female

DRUGS (3)
  1. SOTROVIMAB [Suspect]
     Active Substance: SOTROVIMAB
     Indication: COVID-19
     Dosage: 500 MG/100 ML/30MIN, QD
     Dates: start: 20220215, end: 20220215
  2. GENINAX TABLETS [Concomitant]
     Indication: Pneumonia
     Dosage: 400 MG
     Route: 048
     Dates: start: 20220211, end: 20220215
  3. CEFACLOR CAPSULES [Concomitant]
     Indication: Cellulitis
     Dosage: 1500 MG
     Route: 048
     Dates: start: 20220217

REACTIONS (6)
  - Sepsis [Fatal]
  - Cellulitis [Fatal]
  - Cardiac arrest [Fatal]
  - Swelling [Fatal]
  - Condition aggravated [Fatal]
  - Blood pressure decreased [Fatal]

NARRATIVE: CASE EVENT DATE: 20220217
